FAERS Safety Report 8335563 (Version 2)
Quarter: 2013Q4

REPORT INFORMATION
  Report Type: Spontaneous
  Country: US (occurrence: US)
  Receive Date: 20120113
  Receipt Date: 20131224
  Transmission Date: 20140711
  Serious: Yes (Hospitalization)
  Sender: FDA-Public Use
  Company Number: US-RANBAXY-2011US-51654

PATIENT
  Age: 48 Year
  Sex: Male

DRUGS (6)
  1. CIPROFLOXACIN [Suspect]
     Indication: GASTRIC DISORDER
     Dosage: UNK
     Route: 065
  2. CLINDAMYCIN [Suspect]
     Indication: CELLULITIS
     Dosage: UNK
     Route: 065
  3. CO-TRIMOXAZOLE [Suspect]
     Indication: GASTRIC DISORDER
     Dosage: UNK
     Route: 065
  4. METRONIDAZOLE [Suspect]
     Indication: GASTRIC DISORDER
     Dosage: UNK
     Route: 065
  5. SUCRALFATE [Suspect]
     Indication: GASTRIC DISORDER
     Dosage: UNK
     Route: 065
  6. VANCOMYCIN [Suspect]
     Indication: CELLULITIS
     Dosage: UNK
     Route: 042

REACTIONS (2)
  - Cellulitis [Unknown]
  - Hypersensitivity vasculitis [Recovered/Resolved]
